FAERS Safety Report 19790966 (Version 1)
Quarter: 2021Q3

REPORT INFORMATION
  Report Type: Spontaneous
  Country: US (occurrence: US)
  Receive Date: 20210906
  Receipt Date: 20210906
  Transmission Date: 20211014
  Serious: No
  Sender: FDA-Public Use
  Company Number: US-TEVA-2021-US-1948476

PATIENT
  Sex: Female

DRUGS (1)
  1. AJOVY [Suspect]
     Active Substance: FREMANEZUMAB-VFRM
     Indication: MIGRAINE
     Dosage: AUTOINJECTOR 225 MG / 1.5 ML/USING SINCE ONE AND HALF YEARS
     Route: 065

REACTIONS (2)
  - Drug ineffective [Unknown]
  - Product dose omission issue [Unknown]
